FAERS Safety Report 9349981 (Version 1)
Quarter: 2013Q2

REPORT INFORMATION
  Report Type: Report from Study
  Country: TH (occurrence: TH)
  Receive Date: 20130614
  Receipt Date: 20130614
  Transmission Date: 20140414
  Serious: Yes (Death, Other)
  Sender: FDA-Public Use
  Company Number: PHHY2013TH060148

PATIENT
  Age: 81 Year
  Sex: Female

DRUGS (2)
  1. ZOMETA [Suspect]
     Indication: METASTASES TO BONE
     Dosage: 4 MG, MONTHLY
     Route: 041
  2. ZOMETA [Suspect]
     Dosage: 4 MG, MONTHLY
     Route: 041
     Dates: start: 201305

REACTIONS (4)
  - Multi-organ failure [Fatal]
  - Fatigue [Fatal]
  - Lung neoplasm malignant [Fatal]
  - Aphagia [None]
